FAERS Safety Report 11983204 (Version 4)
Quarter: 2017Q3

REPORT INFORMATION
  Report Type: Report from Study
  Country: JP (occurrence: JP)
  Receive Date: 20160201
  Receipt Date: 20170821
  Transmission Date: 20171127
  Serious: Yes (Hospitalization, Disabling, Other)
  Sender: FDA-Public Use
  Company Number: PHJP2015JP022935

PATIENT
  Age: 13 Year
  Sex: Female
  Weight: 38 kg

DRUGS (47)
  1. ARRANON [Suspect]
     Active Substance: NELARABINE
     Indication: T-CELL TYPE ACUTE LEUKAEMIA
     Dosage: 650 MG/M2, QD
     Route: 041
     Dates: start: 20150303, end: 20150307
  2. PREDONINE [Suspect]
     Active Substance: PREDNISOLONE
     Indication: PRODUCT USED FOR UNKNOWN INDICATION
     Dosage: UNK
     Route: 065
  3. STRONGER NEO-MINOPHAGEN C [Concomitant]
     Active Substance: AMMONIUM GLYCYRRHIZATE\CYSTEINE HYDROCHLORIDE\GLYCINE
     Indication: PRODUCT USED FOR UNKNOWN INDICATION
     Dosage: UNK
     Route: 042
     Dates: start: 20150529, end: 20150603
  4. KETALAR [Concomitant]
     Active Substance: KETAMINE HYDROCHLORIDE
     Dosage: UNK
     Route: 065
     Dates: start: 20150403, end: 20150403
  5. ALESION [Concomitant]
     Active Substance: EPINASTINE HYDROCHLORIDE
     Indication: PROPHYLAXIS
     Dosage: UNK
     Route: 048
     Dates: start: 20150323, end: 20150323
  6. DIAMOX SEQUELS [Concomitant]
     Active Substance: ACETAZOLAMIDE
     Dosage: UNK
     Route: 065
     Dates: start: 20150501, end: 20150502
  7. LEUNASE [Suspect]
     Active Substance: ASPARAGINASE
     Indication: PRODUCT USED FOR UNKNOWN INDICATION
     Dosage: UNK
     Route: 065
  8. L-ASPARAGINASE [Suspect]
     Active Substance: ASPARAGINASE
     Indication: PRODUCT USED FOR UNKNOWN INDICATION
     Route: 065
  9. DIAMOX SEQUELS [Concomitant]
     Active Substance: ACETAZOLAMIDE
     Indication: DIURETIC THERAPY
     Dosage: UNK
     Route: 065
     Dates: start: 20150403, end: 20150404
  10. DORMICUM                                /GFR/ [Concomitant]
     Indication: SEDATIVE THERAPY
     Dosage: UNK
     Route: 065
     Dates: start: 20150316, end: 20150316
  11. ATARAX [Concomitant]
     Active Substance: HYDROXYZINE HYDROCHLORIDE
     Indication: ALLERGY PROPHYLAXIS
     Dosage: UNK
     Route: 065
     Dates: start: 20150512, end: 20150512
  12. KETALAR [Concomitant]
     Active Substance: KETAMINE HYDROCHLORIDE
     Indication: SEDATIVE THERAPY
     Dosage: UNK
     Route: 065
     Dates: start: 20150316, end: 20150316
  13. KETALAR [Concomitant]
     Active Substance: KETAMINE HYDROCHLORIDE
     Dosage: UNK
     Route: 065
     Dates: start: 20150407, end: 20150407
  14. DORMICUM                                /GFR/ [Concomitant]
     Dosage: UNK
     Route: 065
     Dates: start: 20150501, end: 20150501
  15. LEUCOVORIN. [Concomitant]
     Active Substance: LEUCOVORIN
     Indication: DETOXIFICATION
     Dosage: UNK
     Route: 065
     Dates: start: 20150405, end: 20150405
  16. ARRANON [Suspect]
     Active Substance: NELARABINE
     Dosage: 650 MG/M2, QD
     Route: 041
  17. VINDESINE [Suspect]
     Active Substance: VINDESINE
     Indication: PRODUCT USED FOR UNKNOWN INDICATION
     Dosage: 12 MG/M2, UNK
     Route: 065
  18. CYTARABINE. [Suspect]
     Active Substance: CYTARABINE
     Indication: PRODUCT USED FOR UNKNOWN INDICATION
     Dosage: UNK
     Route: 037
  19. IFOMIDE [Suspect]
     Active Substance: IFOSFAMIDE
     Indication: PRODUCT USED FOR UNKNOWN INDICATION
     Dosage: UNK
     Route: 065
  20. FILDESIN [Suspect]
     Active Substance: VINDESINE SULFATE
     Indication: PRODUCT USED FOR UNKNOWN INDICATION
     Dosage: UNK
     Route: 065
  21. KETALAR [Concomitant]
     Active Substance: KETAMINE HYDROCHLORIDE
     Dosage: UNK
     Route: 065
     Dates: start: 20150501, end: 20150501
  22. KETALAR [Concomitant]
     Active Substance: KETAMINE HYDROCHLORIDE
     Dosage: UNK
     Route: 065
     Dates: start: 20150619, end: 20150619
  23. KYTRIL [Concomitant]
     Active Substance: GRANISETRON HYDROCHLORIDE
     Dosage: UNK
     Route: 041
     Dates: start: 20150615, end: 20150619
  24. DORMICUM                                /GFR/ [Concomitant]
     Dosage: UNK
     Route: 065
     Dates: start: 20150403, end: 20150403
  25. ARRANON [Suspect]
     Active Substance: NELARABINE
     Dosage: 650 MG/M2, QD
     Route: 041
     Dates: start: 20150608, end: 20150612
  26. ARRANON [Suspect]
     Active Substance: NELARABINE
     Route: 041
     Dates: end: 20151106
  27. ARRANON [Suspect]
     Active Substance: NELARABINE
     Dosage: 650 MG/M2, QD
     Route: 041
  28. ENDOXAN [Suspect]
     Active Substance: CYCLOPHOSPHAMIDE
     Indication: PRODUCT USED FOR UNKNOWN INDICATION
     Dosage: UNK
     Route: 065
  29. METHOTREXATE. [Suspect]
     Active Substance: METHOTREXATE
     Indication: PRODUCT USED FOR UNKNOWN INDICATION
     Dosage: UNK
     Route: 037
  30. DAUNOMYCIN [Suspect]
     Active Substance: DAUNORUBICIN
     Indication: PRODUCT USED FOR UNKNOWN INDICATION
     Dosage: UNK
     Route: 065
  31. BAKTAR [Concomitant]
     Active Substance: SULFAMETHOXAZOLE\TRIMETHOPRIM
     Indication: PROPHYLAXIS
     Dosage: UNK
     Route: 048
     Dates: start: 20141124
  32. KETALAR [Concomitant]
     Active Substance: KETAMINE HYDROCHLORIDE
     Dosage: UNK
     Route: 065
     Dates: start: 20150527, end: 20150527
  33. KYTRIL [Concomitant]
     Active Substance: GRANISETRON HYDROCHLORIDE
     Dosage: UNK
     Route: 041
     Dates: start: 20150501, end: 20150505
  34. DORMICUM                                /GFR/ [Concomitant]
     Dosage: UNK
     Route: 065
     Dates: start: 20150407, end: 20150407
  35. MEYLON [Concomitant]
     Active Substance: SODIUM BICARBONATE
     Indication: TOXICITY TO VARIOUS AGENTS
     Dosage: UNK
     Route: 042
     Dates: start: 20150402, end: 20150406
  36. VINCRISTINE [Suspect]
     Active Substance: VINCRISTINE
     Indication: PRODUCT USED FOR UNKNOWN INDICATION
     Dosage: 12 MG/M2, UNK
     Route: 065
  37. ONCOVIN [Suspect]
     Active Substance: VINCRISTINE SULFATE
     Indication: PRODUCT USED FOR UNKNOWN INDICATION
     Dosage: UNK
     Route: 042
  38. DECADRON [Suspect]
     Active Substance: DEXAMETHASONE
     Indication: PRODUCT USED FOR UNKNOWN INDICATION
     Route: 065
  39. KYTRIL [Concomitant]
     Active Substance: GRANISETRON HYDROCHLORIDE
     Dosage: UNK
     Route: 041
     Dates: start: 20150403, end: 20150407
  40. DORMICUM                                /GFR/ [Concomitant]
     Dosage: UNK
     Route: 065
     Dates: start: 20150619, end: 20150619
  41. ETOPOSIDE. [Suspect]
     Active Substance: ETOPOSIDE
     Indication: PRODUCT USED FOR UNKNOWN INDICATION
     Dosage: UNK
     Route: 065
  42. DORMICUM                                /GFR/ [Concomitant]
     Dosage: UNK
     Route: 065
     Dates: start: 20150527, end: 20150527
  43. MEYLON [Concomitant]
     Active Substance: SODIUM BICARBONATE
     Dosage: UNK
     Route: 042
     Dates: start: 20150430, end: 20150504
  44. FULCONAZOLE [Concomitant]
     Indication: PROPHYLAXIS
     Dosage: UNK
     Route: 048
     Dates: start: 20141122
  45. UROMITEXAN [Concomitant]
     Active Substance: MESNA
     Indication: PROPHYLAXIS
     Dosage: UNK
     Route: 065
     Dates: start: 20150404, end: 20150407
  46. KYTRIL [Concomitant]
     Active Substance: GRANISETRON HYDROCHLORIDE
     Indication: PROPHYLAXIS
     Dosage: UNK
     Route: 041
     Dates: start: 20150310, end: 20150314
  47. LEUCOVORIN. [Concomitant]
     Active Substance: LEUCOVORIN
     Dosage: UNK
     Route: 065
     Dates: start: 20150503, end: 20150504

REACTIONS (35)
  - Peripheral motor neuropathy [Not Recovered/Not Resolved]
  - Gait disturbance [Unknown]
  - Neutrophil count decreased [Recovering/Resolving]
  - Neurotoxicity [Recovering/Resolving]
  - Pain in extremity [Recovered/Resolved]
  - Myelopathy [Recovering/Resolving]
  - Diffuse axonal injury [Recovering/Resolving]
  - Antithrombin III decreased [Recovered/Resolved]
  - C-reactive protein increased [Unknown]
  - Bacteraemia [Recovered/Resolved]
  - Somnolence [Recovered/Resolved]
  - Platelet count decreased [Recovered/Resolved]
  - Febrile neutropenia [Recovered/Resolved]
  - Back pain [Recovered/Resolved]
  - Urinary incontinence [Not Recovered/Not Resolved]
  - Paraplegia [Recovering/Resolving]
  - Neutrophil count increased [Recovered/Resolved]
  - Muscular weakness [Unknown]
  - Alanine aminotransferase increased [Recovered/Resolved]
  - Febrile neutropenia [Unknown]
  - Cytokine storm [Recovered/Resolved]
  - White blood cell count decreased [Recovering/Resolving]
  - Hypertriglyceridaemia [Recovered/Resolved]
  - Febrile neutropenia [Recovered/Resolved]
  - White blood cell count increased [Recovered/Resolved]
  - Aspartate aminotransferase increased [Recovered/Resolved]
  - Anal incontinence [Unknown]
  - Anaemia [Recovering/Resolving]
  - Febrile neutropenia [Recovered/Resolved]
  - Peripheral sensory neuropathy [Recovering/Resolving]
  - Extensor plantar response [Recovering/Resolving]
  - Pyrexia [Recovered/Resolved]
  - Pain [Recovered/Resolved]
  - Bladder dysfunction [Unknown]
  - Functional gastrointestinal disorder [Unknown]

NARRATIVE: CASE EVENT DATE: 20150306
